FAERS Safety Report 8760927 (Version 12)
Quarter: 2013Q1

REPORT INFORMATION
  Report Type: Spontaneous
  Country: GB (occurrence: GB)
  Receive Date: 20120830
  Receipt Date: 20130207
  Transmission Date: 20140127
  Serious: Yes (Other)
  Sender: FDA-Public Use
  Company Number: PHFR2012GB004698

PATIENT
  Age: 20 Year
  Sex: Female

DRUGS (10)
  1. CLOZARIL [Suspect]
     Indication: SCHIZOPHRENIA
     Dosage: UNK UKN, UNK
     Route: 048
     Dates: start: 20120614
  2. CETRIZINE [Concomitant]
  3. CITALOPRAM [Concomitant]
  4. PREGABALIN [Concomitant]
  5. TOPIRAMATE [Concomitant]
  6. LORAZEPAM [Concomitant]
  7. IBUPROFEN [Concomitant]
  8. PARACETAMOL [Concomitant]
  9. METFORMIN [Concomitant]
  10. DEPO-PROVERA [Concomitant]

REACTIONS (7)
  - Hepatitis C [Unknown]
  - Pain in extremity [Unknown]
  - White blood cell count decreased [Recovering/Resolving]
  - Neutrophil count decreased [Unknown]
  - Fatigue [Unknown]
  - Haemoglobin decreased [Unknown]
  - Platelet count decreased [Unknown]
